FAERS Safety Report 5730380-6 (Version None)
Quarter: 2008Q2

REPORT INFORMATION
  Report Type: 
  Country: None (occurrence: None)
  Receive Date: 20080502
  Receipt Date: 20080417
  Transmission Date: 20081010
  Serious: Yes (Hospitalization)
  Sender: FDA-Public Use
  Company Number: 2008EU000516

PATIENT
  Age: 49 Year
  Sex: Male

DRUGS (17)
  1. PROGRAF [Suspect]
     Indication: LIVER TRANSPLANT
     Dosage: 2 MG, BID, ORAL
     Route: 048
     Dates: start: 20080206
  2. SIMULECT [Suspect]
     Indication: LIVER TRANSPLANT
     Dosage: 20 MG, OTHER, IV NOS
     Route: 042
     Dates: start: 20080206, end: 20080210
  3. HEPATECT(IMMUNOGLOBULIN ANTIHEPATITIS B) [Suspect]
     Dosage: 5000 IU, UID/QD, IV NOS
     Route: 042
     Dates: start: 20080206, end: 20080212
  4. CELLCEPT [Suspect]
     Indication: LIVER TRANSPLANT
     Dosage: 2 G, UID/QD, ORAL
     Route: 048
     Dates: start: 20080206
  5. PROSTIN VR PEDIATRIC [Suspect]
     Indication: LIVER TRANSPLANT
     Dosage: UID/QD
     Dates: start: 20080206, end: 20080212
  6. LAMIVUDINE [Concomitant]
  7. MYCOSTATIN [Concomitant]
  8. POLYMYXIN B SULFATE [Concomitant]
  9. NEOMYCIN [Concomitant]
  10. DAFALGAN [Concomitant]
  11. HEPARIN [Concomitant]
  12. NEXIUM [Concomitant]
  13. ADALAT [Concomitant]
  14. ALBUMIN (HUMAN) [Concomitant]
  15. MORPHINE [Concomitant]
  16. SOLU-MEDROL [Concomitant]
  17. FLUIMUCIL [Concomitant]

REACTIONS (2)
  - PYREXIA [None]
  - SYSTEMIC INFLAMMATORY RESPONSE SYNDROME [None]
